FAERS Safety Report 4767610-3 (Version None)
Quarter: 2005Q3

REPORT INFORMATION
  Report Type: 
  Country: None (occurrence: None)
  Receive Date: 20050912
  Receipt Date: 20050829
  Transmission Date: 20060218
  Serious: Yes (Other)
  Sender: FDA-Public Use
  Company Number: 2005122035

PATIENT
  Sex: Female

DRUGS (2)
  1. CELEBREX [Suspect]
     Indication: BACK PAIN
  2. BEXTRA [Suspect]
     Indication: BACK PAIN

REACTIONS (9)
  - CARDIAC DISORDER [None]
  - CHEST PAIN [None]
  - CORONARY ARTERY OCCLUSION [None]
  - KIDNEY INFECTION [None]
  - MUSCULOSKELETAL DISCOMFORT [None]
  - NERVOUSNESS [None]
  - PULMONARY THROMBOSIS [None]
  - RENAL DISORDER [None]
  - URINARY INCONTINENCE [None]
